FAERS Safety Report 23889406 (Version 2)
Quarter: 2024Q2

REPORT INFORMATION
  Report Type: Spontaneous
  Country: IN (occurrence: IN)
  Receive Date: 20240523
  Receipt Date: 20240624
  Transmission Date: 20240716
  Serious: Yes (Death)
  Sender: FDA-Public Use
  Company Number: IN-PFIZER INC-PV202400051866

PATIENT
  Age: 37 Year
  Sex: Male

DRUGS (5)
  1. INOTUZUMAB OZOGAMICIN [Suspect]
     Active Substance: INOTUZUMAB OZOGAMICIN
     Indication: B precursor type acute leukaemia
     Dosage: 1.5 MG, FIRST DOSE, 1ST CYCLE
     Route: 041
     Dates: start: 20240223, end: 20240223
  2. INOTUZUMAB OZOGAMICIN [Suspect]
     Active Substance: INOTUZUMAB OZOGAMICIN
     Dosage: 1 MG, 2ND DOSE, 1ST CYCLE
     Route: 041
     Dates: start: 20240301, end: 20240301
  3. INOTUZUMAB OZOGAMICIN [Suspect]
     Active Substance: INOTUZUMAB OZOGAMICIN
     Dosage: 1 MG, 3RD DOSE, 1ST CYCLE
     Route: 041
     Dates: start: 20240401, end: 20240401
  4. INOTUZUMAB OZOGAMICIN [Suspect]
     Active Substance: INOTUZUMAB OZOGAMICIN
     Dosage: 1 MG, 1ST DOSE, 2ND CYCLE
     Route: 041
     Dates: start: 20240406, end: 20240406
  5. INOTUZUMAB OZOGAMICIN [Suspect]
     Active Substance: INOTUZUMAB OZOGAMICIN
     Dosage: 1 MG, 2ND DOSE, 2ND CYCLE
     Route: 041
     Dates: start: 20240425, end: 20240425

REACTIONS (1)
  - Death [Fatal]

NARRATIVE: CASE EVENT DATE: 20240429
